FAERS Safety Report 14473088 (Version 4)
Quarter: 2018Q4

REPORT INFORMATION
  Report Type: Spontaneous
  Country: US (occurrence: US)
  Receive Date: 20180201
  Receipt Date: 20181126
  Transmission Date: 20190204
  Serious: Yes (Hospitalization, Other)
  Sender: FDA-Public Use
  Company Number: US-ASTRAZENECA-2018SE12560

PATIENT
  Age: 814 Month
  Sex: Female
  Weight: 69.9 kg

DRUGS (33)
  1. RENVELA [Concomitant]
     Active Substance: SEVELAMER CARBONATE
     Indication: BLOOD PHOSPHORUS DECREASED
     Dates: start: 2005
  2. NIACIN. [Concomitant]
     Active Substance: NIACIN
  3. PAMELOR [Concomitant]
     Active Substance: NORTRIPTYLINE HYDROCHLORIDE
     Dosage: 1 CAPSULE BY MOUTH ONCE A DAY
     Route: 048
  4. DEXILANT [Suspect]
     Active Substance: DEXLANSOPRAZOLE
     Indication: GASTROOESOPHAGEAL REFLUX DISEASE
     Route: 065
     Dates: start: 20160103
  5. VITAMIN D3 [Concomitant]
     Active Substance: CHOLECALCIFEROL
     Indication: BONE DISORDER
     Dates: start: 2013
  6. BYSTOLIC [Concomitant]
     Active Substance: NEBIVOLOL HYDROCHLORIDE
     Route: 048
  7. NEXIUM [Suspect]
     Active Substance: ESOMEPRAZOLE MAGNESIUM
     Indication: GASTROOESOPHAGEAL REFLUX DISEASE
     Dosage: GENERIC
     Route: 065
  8. PREVACID [Suspect]
     Active Substance: LANSOPRAZOLE
     Indication: GASTROOESOPHAGEAL REFLUX DISEASE
     Route: 065
     Dates: start: 20010124, end: 200102
  9. PRAVASTATIN. [Concomitant]
     Active Substance: PRAVASTATIN
     Indication: BLOOD CHOLESTEROL INCREASED
     Dates: start: 2014
  10. CALCIUM ACETATE. [Concomitant]
     Active Substance: CALCIUM ACETATE
     Indication: BLOOD PHOSPHORUS DECREASED
     Dates: start: 2005
  11. NITROGLYCERIN. [Concomitant]
     Active Substance: NITROGLYCERIN
  12. DIPHENHYDRAMINE. [Concomitant]
     Active Substance: DIPHENHYDRAMINE
     Route: 048
  13. NEXIUM [Suspect]
     Active Substance: ESOMEPRAZOLE MAGNESIUM
     Indication: GASTROOESOPHAGEAL REFLUX DISEASE
     Route: 048
     Dates: start: 20140731, end: 20170930
  14. LASIX [Concomitant]
     Active Substance: FUROSEMIDE
     Route: 048
  15. NITRO-BID [Concomitant]
     Active Substance: NITROGLYCERIN
     Dosage: 1 CAPSULE BY MOUTH ONCE A DAY
     Route: 048
  16. NEXIUM [Suspect]
     Active Substance: ESOMEPRAZOLE MAGNESIUM
     Indication: GASTROOESOPHAGEAL REFLUX DISEASE
     Route: 048
     Dates: start: 200109, end: 201512
  17. TOPROL XL [Concomitant]
     Active Substance: METOPROLOL SUCCINATE
  18. OMEGA XL [Concomitant]
     Active Substance: DIETARY SUPPLEMENT
     Indication: ARTHROPATHY
     Dates: start: 2015
  19. FLEXERIL [Concomitant]
     Active Substance: CYCLOBENZAPRINE HYDROCHLORIDE
     Indication: MUSCLE RELAXANT THERAPY
     Dates: start: 2012
  20. JANUVIA [Concomitant]
     Active Substance: SITAGLIPTIN PHOSPHATE
     Indication: DIABETES MELLITUS
     Dates: start: 2007, end: 2015
  21. ACETAMINOPHEN. [Concomitant]
     Active Substance: ACETAMINOPHEN
     Indication: ANALGESIC THERAPY
     Dates: start: 2007, end: 2015
  22. AMITRIPTYLINE [Concomitant]
     Active Substance: AMITRIPTYLINE
  23. PRILOSEC [Suspect]
     Active Substance: OMEPRAZOLE MAGNESIUM
     Indication: GASTROOESOPHAGEAL REFLUX DISEASE
     Route: 048
     Dates: start: 20000203, end: 20011203
  24. VOLTAREN [Concomitant]
     Active Substance: DICLOFENAC SODIUM
     Indication: MYALGIA
     Dates: start: 2012
  25. PRAVACHOL [Concomitant]
     Active Substance: PRAVASTATIN SODIUM
  26. EZETIMIBE. [Concomitant]
     Active Substance: EZETIMIBE
  27. ARANESP [Concomitant]
     Active Substance: DARBEPOETIN ALFA
     Dosage: INJECT 0.4 MLS (40 MCG TOTAL) INTO THE SKIN EVERY 30 (THIRTY) DAYS.
  28. 325 ASPIRIN [Concomitant]
     Indication: CARDIAC DISORDER
     Dates: start: 2000
  29. GABAPENTIN. [Concomitant]
     Active Substance: GABAPENTIN
     Indication: NEURALGIA
     Dates: start: 2005
  30. HYDROCODONE-ACETAMINOPHEN [Concomitant]
     Active Substance: ACETAMINOPHEN\HYDROCODONE
  31. TELMISARTAN. [Concomitant]
     Active Substance: TELMISARTAN
  32. CLOPIDOGREL [Concomitant]
     Active Substance: CLOPIDOGREL BISULFATE
  33. ALLOPURINOL. [Concomitant]
     Active Substance: ALLOPURINOL

REACTIONS (6)
  - Hyperparathyroidism secondary [Unknown]
  - End stage renal disease [Unknown]
  - Nephrogenic anaemia [Unknown]
  - Acute kidney injury [Unknown]
  - Renal failure [Unknown]
  - Chronic kidney disease [Unknown]

NARRATIVE: CASE EVENT DATE: 201012
